FAERS Safety Report 24922973 (Version 1)
Quarter: 2025Q1

REPORT INFORMATION
  Report Type: Spontaneous
  Country: TH (occurrence: TH)
  Receive Date: 20250204
  Receipt Date: 20250204
  Transmission Date: 20250409
  Serious: Yes (Other)
  Sender: PFIZER
  Company Number: TH-PFIZER INC-PV202500013691

PATIENT
  Age: 74 Year
  Sex: Female

DRUGS (3)
  1. IBRANCE [Suspect]
     Active Substance: PALBOCICLIB
     Indication: Breast cancer
     Route: 048
     Dates: start: 20240904, end: 20240925
  2. IBRANCE [Suspect]
     Active Substance: PALBOCICLIB
     Route: 048
     Dates: start: 20241017, end: 202412
  3. FULVESTRANT [Concomitant]
     Active Substance: FULVESTRANT

REACTIONS (2)
  - Pulmonary oedema [Unknown]
  - White blood cell count decreased [Unknown]
